APPROVED DRUG PRODUCT: CLOBETASOL PROPIONATE (EMOLLIENT)
Active Ingredient: CLOBETASOL PROPIONATE
Strength: 0.05%
Dosage Form/Route: CREAM;TOPICAL
Application: A075430 | Product #001 | TE Code: AB2
Applicant: FOUGERA PHARMACEUTICALS INC
Approved: May 26, 1999 | RLD: No | RS: Yes | Type: RX